FAERS Safety Report 9157751 (Version 3)
Quarter: 2015Q3

REPORT INFORMATION
  Report Type: Spontaneous
  Country: US (occurrence: US)
  Receive Date: 20130312
  Receipt Date: 20150722
  Transmission Date: 20151125
  Serious: Yes (Hospitalization, Disabling, Other)
  Sender: FDA-Public Use
  Company Number: US-009507513-1108USA01140

PATIENT
  Sex: Female
  Weight: 57.14 kg

DRUGS (6)
  1. FOSAMAX [Suspect]
     Active Substance: ALENDRONATE SODIUM
     Indication: OSTEOPOROSIS
     Dosage: 70 MG, QW
     Route: 048
     Dates: start: 20010820, end: 20080211
  2. ALENDRONATE SODIUM. [Suspect]
     Active Substance: ALENDRONATE SODIUM
     Indication: OSTEOPOROSIS
     Dosage: 70 MG, UNK
     Route: 048
     Dates: start: 20091029, end: 20100225
  3. VITAMINS (UNSPECIFIED) [Concomitant]
     Active Substance: VITAMINS
     Indication: PRODUCT USED FOR UNKNOWN INDICATION
     Dosage: UNK
     Route: 048
     Dates: start: 2001
  4. ALENDRONATE SODIUM. [Suspect]
     Active Substance: ALENDRONATE SODIUM
     Indication: OSTEOPOROSIS
     Dosage: 70 MG, UNK
     Route: 048
     Dates: start: 20080902, end: 20091002
  5. VITAMIN D [Concomitant]
     Active Substance: CHOLECALCIFEROL
     Indication: PRODUCT USED FOR UNKNOWN INDICATION
     Dosage: UNK
     Route: 048
     Dates: start: 2001
  6. ALENDRONATE SODIUM. [Suspect]
     Active Substance: ALENDRONATE SODIUM
     Indication: OSTEOPOROSIS
     Dosage: 70 MG, UNK
     Route: 048
     Dates: start: 20080312, end: 20080805

REACTIONS (22)
  - Vertigo [Unknown]
  - Synovial cyst [Unknown]
  - Malabsorption [Unknown]
  - Vitamin D deficiency [Unknown]
  - Nausea [Unknown]
  - Haemoglobin decreased [Unknown]
  - Femur fracture [Not Recovered/Not Resolved]
  - Fall [Unknown]
  - Scoliosis [Unknown]
  - Osteoarthritis [Unknown]
  - Vertebral foraminal stenosis [Unknown]
  - Radiculopathy [Unknown]
  - Dysaesthesia [Unknown]
  - Hyperparathyroidism [Unknown]
  - Back pain [Unknown]
  - Osteoarthritis [Unknown]
  - Hypoxia [Recovered/Resolved]
  - Poor quality sleep [Unknown]
  - Headache [Unknown]
  - Macrocytosis [Unknown]
  - Gastrointestinal tract adenoma [Unknown]
  - Surgery [Unknown]

NARRATIVE: CASE EVENT DATE: 200308
